FAERS Safety Report 8142490-7 (Version None)
Quarter: 2012Q1

REPORT INFORMATION
  Report Type: 
  Country: None (occurrence: None)
  Receive Date: 20120216
  Receipt Date: 20120209
  Transmission Date: 20120608
  Serious: Yes (Hospitalization)
  Sender: FDA-Public Use
  Company Number: US-NOVOPROD-344625

PATIENT
  Age: 78 Year
  Sex: Female
  Weight: 87.528 kg

DRUGS (2)
  1. RANITIDINE [Concomitant]
     Indication: ULCER
     Dosage: 15 MG QD
     Route: 048
  2. NOVOLOG MIX 70/30 [Suspect]
     Indication: TYPE 2 DIABETES MELLITUS
     Dosage: 4 U IN AM AND 22 U IN PM
     Route: 058
     Dates: start: 20110101

REACTIONS (2)
  - BLOOD ELECTROLYTES ABNORMAL [None]
  - BLOOD GLUCOSE INCREASED [None]
